FAERS Safety Report 6897829-7 (Version None)
Quarter: 2010Q3

REPORT INFORMATION
  Report Type: 
  Country: None (occurrence: None)
  Receive Date: 20100802
  Receipt Date: 20070730
  Transmission Date: 20110219
  Serious: No
  Sender: FDA-Public Use
  Company Number: US-PFIZER INC-2007063693

PATIENT
  Sex: Female
  Weight: 65.9 kg

DRUGS (1)
  1. LYRICA [Suspect]
     Indication: FIBROMYALGIA
     Dosage: TDD:525MG
     Dates: start: 20070301, end: 20070729

REACTIONS (6)
  - ANXIETY [None]
  - ARTHRALGIA [None]
  - ASTHENIA [None]
  - INSOMNIA [None]
  - NAUSEA [None]
  - TREMOR [None]
